FAERS Safety Report 21505362 (Version 1)
Quarter: 2022Q4

REPORT INFORMATION
  Report Type: Spontaneous
  Country: US (occurrence: US)
  Receive Date: 20221026
  Receipt Date: 20221026
  Transmission Date: 20230112
  Serious: Yes (Other)
  Sender: FDA-Public Use
  Company Number: US-NOVAST LABORATORIES INC.-2022NOV000314

PATIENT
  Age: 6 Month
  Sex: Male

DRUGS (6)
  1. CLONIDINE [Suspect]
     Active Substance: CLONIDINE
     Indication: Product used for unknown indication
     Dosage: 15 MICROGRAM EVERY 6 HOUR
     Route: 065
  2. DEXMEDETOMIDINE [Concomitant]
     Active Substance: DEXMEDETOMIDINE
     Indication: Product used for unknown indication
     Dosage: UNK
     Route: 065
  3. METHADONE [Concomitant]
     Active Substance: METHADONE HYDROCHLORIDE
     Indication: Product used for unknown indication
     Dosage: 0.15 MILLIGRAM, QD
     Route: 065
  4. LASIX [Concomitant]
     Active Substance: FUROSEMIDE
     Indication: Product used for unknown indication
     Dosage: UNK
     Route: 065
  5. SILDENAFIL [Concomitant]
     Active Substance: SILDENAFIL
     Indication: Product used for unknown indication
     Dosage: UNK
     Route: 065
  6. EPINEPHRINE [Concomitant]
     Active Substance: EPINEPHRINE
     Indication: Hypotension
     Dosage: UNK
     Route: 065

REACTIONS (2)
  - Stress cardiomyopathy [Recovering/Resolving]
  - Overdose [Unknown]
